FAERS Safety Report 16331209 (Version 1)
Quarter: 2019Q2

REPORT INFORMATION
  Report Type: Spontaneous
  Country: US (occurrence: US)
  Receive Date: 20190517
  Receipt Date: 20190517
  Transmission Date: 20190711
  Serious: Yes (Hospitalization)
  Sender: FDA-Public Use
  Company Number: None

PATIENT
  Age: 73 Year
  Sex: Female

DRUGS (13)
  1. CALCIUM [Concomitant]
     Active Substance: CALCIUM
  2. XGEVA [Concomitant]
     Active Substance: DENOSUMAB
  3. NEXIUM [Concomitant]
     Active Substance: ESOMEPRAZOLE MAGNESIUM
  4. CARAFATE [Concomitant]
     Active Substance: SUCRALFATE
  5. IBUPROFEN. [Concomitant]
     Active Substance: IBUPROFEN
  6. FENTANYL. [Concomitant]
     Active Substance: FENTANYL
  7. IBRANCE [Suspect]
     Active Substance: PALBOCICLIB
     Indication: NEOPLASM MALIGNANT
     Route: 048
  8. PAROXETINE. [Concomitant]
     Active Substance: PAROXETINE
  9. MIRALAX [Concomitant]
     Active Substance: POLYETHYLENE GLYCOL 3350
  10. AMLODIPINE [Concomitant]
     Active Substance: AMLODIPINE BESYLATE
  11. FASLODEX [Concomitant]
     Active Substance: FULVESTRANT
  12. PRESERVISION [Concomitant]
     Active Substance: MINERALS\VITAMINS
  13. TYLENOL [Concomitant]
     Active Substance: ACETAMINOPHEN

REACTIONS (2)
  - Blood count abnormal [None]
  - Therapy cessation [None]

NARRATIVE: CASE EVENT DATE: 20190508
